FAERS Safety Report 9628367 (Version 3)
Quarter: 2014Q4

REPORT INFORMATION
  Report Type: Spontaneous
  Country: FR (occurrence: FR)
  Receive Date: 20131017
  Receipt Date: 20141027
  Transmission Date: 20150529
  Serious: Yes (Hospitalization, Disabling, Other)
  Sender: FDA-Public Use
  Company Number: FR-BAYER-2013-122846

PATIENT
  Age: 47 Year
  Sex: Female

DRUGS (2)
  1. EPITOMAX [Concomitant]
     Active Substance: TOPIRAMATE
     Indication: MIGRAINE
  2. YAZ [Suspect]
     Active Substance: DROSPIRENONE\ETHINYL ESTRADIOL
     Dosage: UNK
     Dates: start: 201112, end: 201206

REACTIONS (7)
  - Subarachnoid haemorrhage [None]
  - Cerebral venous thrombosis [None]
  - Headache [None]
  - Migraine [None]
  - Hypoaesthesia [None]
  - Fatigue [None]
  - Hemiparesis [None]

NARRATIVE: CASE EVENT DATE: 20120612
